FAERS Safety Report 7128881-1 (Version None)
Quarter: 2010Q4

REPORT INFORMATION
  Report Type: 
  Country: None (occurrence: None)
  Receive Date: 20101116
  Receipt Date: 20101102
  Transmission Date: 20110411
  Serious: No
  Sender: FDA-Public Use
  Company Number: 8054830

PATIENT
  Age: 30 Year
  Sex: Female

DRUGS (4)
  1. KEPPRA [Suspect]
     Indication: CONVULSION
     Dosage: (500 MG BID) ; (750 MG BID ORAL)
     Route: 048
     Dates: start: 20091117, end: 20091101
  2. KEPPRA [Suspect]
     Indication: CONVULSION
     Dosage: (500 MG BID) ; (750 MG BID ORAL)
     Route: 048
     Dates: start: 20091101
  3. PRENATAL VITAMINS /01549301/ [Concomitant]
  4. TYLENOL W/ CODEINE [Concomitant]

REACTIONS (3)
  - DRUG EXPOSURE DURING PREGNANCY [None]
  - HAEMORRHAGE [None]
  - PROCEDURAL HEADACHE [None]
